FAERS Safety Report 7964210-9 (Version None)
Quarter: 2011Q4

REPORT INFORMATION
  Report Type: 
  Country: None (occurrence: None)
  Receive Date: 20111208
  Receipt Date: 20111128
  Transmission Date: 20120403
  Serious: Yes (Other)
  Sender: FDA-Public Use
  Company Number: SE-COVIDIEN/TYCO HEALTHCARE/MALLINCKRODT-T201102820

PATIENT
  Age: 45 Year

DRUGS (1)
  1. SODIUM IODIDE (I 131) CAPSULES T [Suspect]
     Indication: BASEDOW'S DISEASE
     Dosage: SINGLE ORAL DOSE TO DELIVER 120 GY TO THE THYROID
     Route: 048

REACTIONS (1)
  - ENDOCRINE OPHTHALMOPATHY [None]
